FAERS Safety Report 15246811 (Version 6)
Quarter: 2018Q3

REPORT INFORMATION
  Report Type: Spontaneous
  Country: JP (occurrence: JP)
  Receive Date: 20180806
  Receipt Date: 20180903
  Transmission Date: 20181010
  Serious: Yes (Other)
  Sender: FDA-Public Use
  Company Number: PHJP2018JP014802

PATIENT
  Age: 63 Year
  Sex: Female

DRUGS (7)
  1. TAKEPRON [Concomitant]
     Active Substance: LANSOPRAZOLE
     Indication: PRODUCT USED FOR UNKNOWN INDICATION
     Dosage: UNK
     Route: 048
  2. CYMBALTA [Concomitant]
     Active Substance: DULOXETINE HYDROCHLORIDE
     Indication: PRODUCT USED FOR UNKNOWN INDICATION
     Dosage: UNK
     Route: 048
  3. VOLTAREN SUP [Suspect]
     Active Substance: DICLOFENAC SODIUM
     Indication: OSTEOARTHRITIS
     Dosage: 25 MG, UNK
     Route: 054
     Dates: start: 201701, end: 201706
  4. VONOSAP [Concomitant]
     Indication: PRODUCT USED FOR UNKNOWN INDICATION
     Dosage: UNK
     Route: 065
  5. VOLTAREN [Suspect]
     Active Substance: DICLOFENAC SODIUM
     Indication: OSTEOARTHRITIS
     Dosage: 25 MG, BID
     Route: 048
     Dates: start: 201701
  6. VOLTAREN [Suspect]
     Active Substance: DICLOFENAC SODIUM
     Dosage: 25 MG, UNK
     Route: 048
     Dates: end: 201706
  7. DEPAS [Concomitant]
     Active Substance: ETIZOLAM
     Indication: PRODUCT USED FOR UNKNOWN INDICATION
     Dosage: UNK
     Route: 048

REACTIONS (10)
  - Gastrointestinal erosion [Unknown]
  - Enterocolitis [Recovered/Resolved]
  - Hypokalaemia [Unknown]
  - Chronic gastritis [Unknown]
  - Hypoproteinaemia [Unknown]
  - Abdominal pain [Recovered/Resolved]
  - Ileal ulcer [Unknown]
  - Diarrhoea [Recovered/Resolved]
  - Abdominal tenderness [Unknown]
  - Inflammation [Unknown]

NARRATIVE: CASE EVENT DATE: 201704
